FAERS Safety Report 20163068 (Version 1)
Quarter: 2021Q4

REPORT INFORMATION
  Report Type: Spontaneous
  Country: RS (occurrence: RS)
  Receive Date: 20211209
  Receipt Date: 20211209
  Transmission Date: 20220303
  Serious: Yes (Life-Threatening, Hospitalization, Other)
  Sender: FDA-Public Use
  Company Number: RS-ABBVIE-21K-303-4191026-00

PATIENT
  Age: 34 Year
  Sex: Male

DRUGS (3)
  1. VALPROATE SODIUM [Suspect]
     Active Substance: VALPROATE SODIUM
     Indication: Partial seizures
     Dosage: 1500 MG PLUS 0 PLUS 1500 MG
     Route: 048
     Dates: start: 2008
  2. LEVETIRACETAM [Suspect]
     Active Substance: LEVETIRACETAM
     Indication: Partial seizures
     Dosage: 1500 MG PLUS 0 PLUS 1500 MG
     Route: 048
     Dates: start: 20140110
  3. LAMOTRIGINE [Suspect]
     Active Substance: LAMOTRIGINE
     Indication: Partial seizures
     Route: 048
     Dates: end: 20210114

REACTIONS (2)
  - Cutaneous T-cell lymphoma [Unknown]
  - Pseudolymphoma [Unknown]

NARRATIVE: CASE EVENT DATE: 20150101
